FAERS Safety Report 10464809 (Version 2)
Quarter: 2014Q3

REPORT INFORMATION
  Report Type: Spontaneous
  Country: US (occurrence: US)
  Receive Date: 20140919
  Receipt Date: 20140919
  Transmission Date: 20150326
  Serious: Yes (Hospitalization)
  Sender: FDA-Public Use
  Company Number: US-LUNDBECK-DKLU1102325

PATIENT
  Age: 36 Year
  Sex: Female
  Weight: 105 kg

DRUGS (2)
  1. SABRIL [Suspect]
     Active Substance: VIGABATRIN
     Indication: COMPLEX PARTIAL SEIZURES
     Dates: start: 20111007
  2. SABRIL [Suspect]
     Active Substance: VIGABATRIN
     Dates: start: 201307

REACTIONS (3)
  - Pneumonia [Recovered/Resolved]
  - Convulsion [Recovered/Resolved]
  - Urinary tract infection [Recovered/Resolved]

NARRATIVE: CASE EVENT DATE: 20140701
